FAERS Safety Report 22042978 (Version 3)
Quarter: 2023Q4

REPORT INFORMATION
  Report Type: Spontaneous
  Country: JP (occurrence: JP)
  Receive Date: 20230228
  Receipt Date: 20231101
  Transmission Date: 20240109
  Serious: Yes (Hospitalization, Other)
  Sender: FDA-Public Use
  Company Number: JP-CHUGAI-2023005913

PATIENT
  Sex: Male
  Weight: 77.7 kg

DRUGS (6)
  1. GAZYVA [Suspect]
     Active Substance: OBINUTUZUMAB
     Indication: Follicular lymphoma
     Dosage: THREE TIMES/FOUR WEEKS
     Route: 042
     Dates: start: 20210701, end: 20210923
  2. GAZYVA [Suspect]
     Active Substance: OBINUTUZUMAB
     Route: 041
     Dates: start: 20211118, end: 20220929
  3. BENDAMUSTINE HYDROCHLORIDE [Concomitant]
     Active Substance: BENDAMUSTINE HYDROCHLORIDE
     Indication: Follicular lymphoma
     Dosage: UNK
     Route: 041
     Dates: start: 20210701
  4. FEBUXOSTAT [Concomitant]
     Active Substance: FEBUXOSTAT
     Dosage: UNK
     Dates: start: 20210630, end: 20220928
  5. FAMOTIDINE [Concomitant]
     Active Substance: FAMOTIDINE
     Dosage: UNK
     Dates: start: 20210630, end: 20221214
  6. SULFAMETHOXAZOLE\TRIMETHOPRIM [Concomitant]
     Active Substance: SULFAMETHOXAZOLE\TRIMETHOPRIM
     Dosage: UNK
     Dates: start: 20211118

REACTIONS (6)
  - Aplastic anaemia [Recovering/Resolving]
  - Sepsis [Unknown]
  - Pneumonia [Unknown]
  - Cytomegalovirus test positive [Unknown]
  - Mouth ulceration [Recovering/Resolving]
  - Mouth ulceration [Unknown]

NARRATIVE: CASE EVENT DATE: 20220101
